FAERS Safety Report 6239632-7 (Version None)
Quarter: 2009Q2

REPORT INFORMATION
  Report Type: 
  Country: None (occurrence: None)
  Receive Date: 20090622
  Receipt Date: 20090615
  Transmission Date: 20091009
  Serious: Yes (Other)
  Sender: FDA-Public Use
  Company Number: US-JNJCH-2009016468

PATIENT
  Age: 47 Year
  Sex: Female
  Weight: 67.1 kg

DRUGS (5)
  1. ZYRTEC [Suspect]
     Indication: HYPERSENSITIVITY
     Dosage: TEXT:ONE TABLET ONCE AT NIGHT
     Route: 048
     Dates: start: 19930101, end: 20090615
  2. FLONASE [Concomitant]
     Indication: HYPERSENSITIVITY
     Dosage: TEXT:TWO SPRAYS ONCE DAILY
     Route: 065
  3. ESTROGENS [Concomitant]
     Indication: HOT FLUSH
     Dosage: TEXT:12 MG ONCE AT NIGHT
     Route: 065
  4. ALL OTHER NON-THERAPEUTIC PRODUCTS [Concomitant]
     Indication: DRUG USE FOR UNKNOWN INDICATION
     Dosage: TEXT:UNKNOWN
     Route: 065
  5. AVEENO CREAM [Concomitant]
     Indication: DRUG USE FOR UNKNOWN INDICATION
     Dosage: TEXT:UNKNOWN
     Route: 065

REACTIONS (1)
  - COELIAC DISEASE [None]
